FAERS Safety Report 5247627-5 (Version None)
Quarter: 2007Q1

REPORT INFORMATION
  Report Type: 
  Country: None (occurrence: None)
  Receive Date: 20070223
  Receipt Date: 20070223
  Transmission Date: 20070707
  Serious: Yes (Hospitalization)
  Sender: FDA-Public Use
  Company Number: None

PATIENT
  Age: 53 Year
  Sex: Male
  Weight: 79.4 kg

DRUGS (9)
  1. DILANTIN [Suspect]
     Dosage: 100MG, BID, BY MOUTH
     Route: 048
     Dates: start: 20061018, end: 20061025
  2. VARDENAFIL HCL (LEVITRA) [Concomitant]
  3. BUPROPION HCL [Concomitant]
  4. DOCUSATE SODIUM (COLACE) [Concomitant]
  5. HYDRALAZINE HCL [Concomitant]
  6. LOVASTATIN [Concomitant]
  7. QUETIAPINE FUMARATE [Concomitant]
  8. RANITIDINE HCL [Concomitant]
  9. ACETAMINOPHEN W/ CODEINE TAB [Concomitant]

REACTIONS (6)
  - HEPATIC ENZYME ABNORMAL [None]
  - HYPOTENSION [None]
  - JAUNDICE [None]
  - PYREXIA [None]
  - RASH [None]
  - SWELLING [None]
